FAERS Safety Report 15884102 (Version 1)
Quarter: 2019Q1

REPORT INFORMATION
  Report Type: Spontaneous
  Country: US (occurrence: US)
  Receive Date: 20190129
  Receipt Date: 20190129
  Transmission Date: 20190417
  Serious: No
  Sender: FDA-Public Use
  Company Number: US-BAYER-2019-017400

PATIENT
  Age: 85 Year
  Sex: Male
  Weight: 70 kg

DRUGS (1)
  1. ALEVE [Suspect]
     Active Substance: NAPROXEN SODIUM
     Indication: SLEEP DISORDER
     Dosage: 1 DF
     Route: 048
     Dates: start: 201809, end: 20190118

REACTIONS (4)
  - Sensation of foreign body [Unknown]
  - Dysgeusia [Unknown]
  - Burning sensation [Unknown]
  - Product use in unapproved indication [Unknown]
